FAERS Safety Report 23451175 (Version 1)
Quarter: 2024Q1

REPORT INFORMATION
  Report Type: Spontaneous
  Country: US (occurrence: None)
  Receive Date: 20240128
  Receipt Date: 20240128
  Transmission Date: 20240410
  Serious: Yes (Death)
  Sender: FDA-Public Use
  Company Number: None

PATIENT
  Age: 33 Year
  Sex: Male
  Weight: 83.25 kg

DRUGS (2)
  1. TIANEPTINE [Suspect]
     Active Substance: TIANEPTINE
     Indication: Product used for unknown indication
  2. 4-AMINO-3-PHENYLBUTYRIC ACID [Suspect]
     Active Substance: 4-AMINO-3-PHENYLBUTYRIC ACID

REACTIONS (4)
  - Product label issue [None]
  - Alcohol use [None]
  - Product complaint [None]
  - Withdrawal syndrome [None]

NARRATIVE: CASE EVENT DATE: 20220127
